FAERS Safety Report 19407807 (Version 3)
Quarter: 2021Q2

REPORT INFORMATION
  Report Type: Report from Study
  Country: GB (occurrence: GB)
  Receive Date: 20210611
  Receipt Date: 20210626
  Transmission Date: 20210717
  Serious: Yes (Other)
  Sender: FDA-Public Use
  Company Number: NVSC2021GB122851

PATIENT
  Sex: Female

DRUGS (1)
  1. HYRIMOZ [Suspect]
     Active Substance: ADALIMUMAB-ADAZ
     Indication: COLITIS ULCERATIVE
     Dosage: UNK UNK, Q2W (WEEK 0 ? 160MG, WEEK 2 ? 80MG, WEEK 4? 40 MG, AFTER 40 MG E2W)
     Route: 058
     Dates: start: 20210514

REACTIONS (12)
  - Diabetes mellitus [Unknown]
  - Anal incontinence [Unknown]
  - Discomfort [Unknown]
  - Abdominal discomfort [Unknown]
  - Fatigue [Unknown]
  - Decreased activity [Unknown]
  - Depressed mood [Unknown]
  - Insomnia [Unknown]
  - Weight decreased [Unknown]
  - Crohn^s disease [Unknown]
  - Frequent bowel movements [Unknown]
  - Urinary tract infection [Unknown]
